FAERS Safety Report 4350400-3 (Version None)
Quarter: 2004Q2

REPORT INFORMATION
  Report Type: 
  Country: None (occurrence: None)
  Receive Date: 20040430
  Receipt Date: 20040423
  Transmission Date: 20050107
  Serious: Yes (Other)
  Sender: FDA-Public Use
  Company Number: US-BRISTOL-MYERS SQUIBB COMPANY-12569646

PATIENT
  Age: 3 Decade
  Sex: Female

DRUGS (2)
  1. SUSTIVA [Suspect]
     Indication: HIV INFECTION
     Route: 048
  2. ACCUPRIL [Suspect]

REACTIONS (2)
  - ANGIONEUROTIC OEDEMA [None]
  - LIP BLISTER [None]
